FAERS Safety Report 7491468-5 (Version None)
Quarter: 2011Q2

REPORT INFORMATION
  Report Type: 
  Country: None (occurrence: None)
  Receive Date: 20110519
  Receipt Date: 20110511
  Transmission Date: 20111010
  Serious: Yes (Hospitalization)
  Sender: FDA-Public Use
  Company Number: PHHO2011AT08421

PATIENT
  Sex: Female

DRUGS (7)
  1. PREDNISOLONE [Concomitant]
     Indication: RHEUMATOID ARTHRITIS
  2. CITALOPRAM [Concomitant]
     Indication: DEPRESSION
  3. SIMVASTATIN [Concomitant]
     Indication: HYPERCHOLESTEROLAEMIA
  4. DUSODRIL [Concomitant]
     Indication: PERIPHERAL VASCULAR DISORDER
  5. ASPIRIN [Concomitant]
     Indication: PROPHYLAXIS
  6. LASIX [Concomitant]
  7. LETROZOLE [Suspect]
     Indication: BREAST CANCER
     Dosage: 2.5 MG, QD
     Route: 048
     Dates: start: 20061229

REACTIONS (2)
  - SKIN ULCER [None]
  - PAIN IN EXTREMITY [None]
